FAERS Safety Report 6254677-9 (Version None)
Quarter: 2009Q3

REPORT INFORMATION
  Report Type: 
  Country: None (occurrence: None)
  Receive Date: 20090702
  Receipt Date: 20090625
  Transmission Date: 20100115
  Serious: Yes (Other)
  Sender: FDA-Public Use
  Company Number: US-AVENTIS-200915576US

PATIENT
  Sex: Male

DRUGS (3)
  1. LANTUS [Suspect]
     Route: 058
  2. OPTICLIK (INSULIN INJECTION PEN) [Suspect]
  3. CORTICOSTEROIDS [Suspect]
     Dosage: DOSE: UNK
     Route: 047

REACTIONS (6)
  - BLOOD GLUCOSE INCREASED [None]
  - CATARACT OPERATION [None]
  - DEVICE ELECTRICAL FINDING [None]
  - EYE SWELLING [None]
  - MYDRIASIS [None]
  - VISUAL IMPAIRMENT [None]
